FAERS Safety Report 6512955-X (Version None)
Quarter: 2009Q4

REPORT INFORMATION
  Report Type: 
  Country: None (occurrence: None)
  Receive Date: 20091222
  Receipt Date: 20091222
  Transmission Date: 20100525
  Serious: Yes (Hospitalization)
  Sender: FDA-Public Use
  Company Number: None

PATIENT
  Sex: Male
  Weight: 126.2 kg

DRUGS (8)
  1. AZACITIDINE 75 MG/M2 [Suspect]
     Indication: ACUTE MYELOID LEUKAEMIA
     Dosage: 75 MG/M2 QD IV
     Route: 042
     Dates: start: 20091217
  2. VICODIN [Concomitant]
  3. CEFTRIAXONE (ROCHEPHIN) [Concomitant]
  4. PROCHLORPERAZINE (COMPAZINE) [Concomitant]
  5. LEVAQUIN [Concomitant]
  6. ONDANSETRON (ZOFRAN ODT) [Concomitant]
  7. HYTRIN [Concomitant]
  8. ALBUTEROL-IPRATROPIUM (COMBIVENT) [Concomitant]

REACTIONS (5)
  - CHILLS [None]
  - DYSPNOEA [None]
  - FEBRILE NEUTROPENIA [None]
  - HYPERHIDROSIS [None]
  - NAUSEA [None]
